FAERS Safety Report 11547238 (Version 1)
Quarter: 2015Q3

REPORT INFORMATION
  Report Type: Spontaneous
  Country: US (occurrence: US)
  Receive Date: 20150903
  Receipt Date: 20150903
  Transmission Date: 20151125
  Serious: No
  Sender: FDA-Public Use
  Company Number: US-ELI_LILLY_AND_COMPANY-US201101003006

PATIENT
  Sex: Female

DRUGS (6)
  1. HUMALOG [Suspect]
     Active Substance: INSULIN LISPRO
     Dosage: 25 U, 3/D
  2. HUMALOG [Suspect]
     Active Substance: INSULIN LISPRO
     Indication: TYPE 2 DIABETES MELLITUS
     Dosage: 25 U, 3/D
  3. HUMALOG [Suspect]
     Active Substance: INSULIN LISPRO
     Dosage: 25 U, 3/D
  4. HUMALOG [Suspect]
     Active Substance: INSULIN LISPRO
     Dosage: 25 U, 3/D
  5. HUMALOG [Suspect]
     Active Substance: INSULIN LISPRO
     Dosage: 25 U, 3/D
  6. LANTUS [Concomitant]
     Active Substance: INSULIN GLARGINE
     Dosage: 75 U, EACH EVENING

REACTIONS (8)
  - Malaise [Unknown]
  - Anger [Unknown]
  - Carpal tunnel syndrome [Unknown]
  - Arthritis [Unknown]
  - Incorrect dose administered [Unknown]
  - Neuropathy peripheral [Unknown]
  - Macular degeneration [Unknown]
  - Vomiting [Unknown]

NARRATIVE: CASE EVENT DATE: 20110112
